FAERS Safety Report 8550346-0 (Version None)
Quarter: 2012Q3

REPORT INFORMATION
  Report Type: 
  Country: None (occurrence: None)
  Receive Date: 20120730
  Receipt Date: 20120726
  Transmission Date: 20120928
  Serious: Yes (Hospitalization, Other)
  Sender: FDA-Public Use
  Company Number: US-PFIZER INC-2012182323

PATIENT
  Sex: Male

DRUGS (2)
  1. INLYTA [Suspect]
     Dosage: 3 MG, 2X/DAY
     Dates: end: 20120701
  2. INLYTA [Suspect]
     Indication: RENAL CELL CARCINOMA
     Dosage: 5 MG, 2X/DAY
     Dates: start: 20120601

REACTIONS (3)
  - RETINAL VEIN THROMBOSIS [None]
  - FATIGUE [None]
  - GENERAL PHYSICAL HEALTH DETERIORATION [None]
